FAERS Safety Report 24751526 (Version 1)
Quarter: 2024Q4

REPORT INFORMATION
  Report Type: Spontaneous
  Country: US (occurrence: US)
  Receive Date: 20241219
  Receipt Date: 20241219
  Transmission Date: 20250115
  Serious: Yes (Life-Threatening, Hospitalization)
  Sender: PACIRA
  Company Number: US-ORG100016242-2024000541

PATIENT
  Age: 75 Year
  Sex: Male
  Weight: 79.6 kg

DRUGS (3)
  1. EXPAREL [Suspect]
     Active Substance: BUPIVACAINE
     Indication: Nerve block
     Route: 058
     Dates: start: 20240805, end: 20240805
  2. BUPIVACAINE [Suspect]
     Active Substance: BUPIVACAINE
     Indication: Nerve block
     Route: 058
     Dates: start: 20240805, end: 20240805
  3. ANESTHETIC [Concomitant]
     Active Substance: BENZOCAINE\LIDOCAINE HYDROCHLORIDE
     Indication: General anaesthesia
     Dosage: NOT PROVIDED
     Route: 007
     Dates: start: 20240805, end: 20240805

REACTIONS (2)
  - Phrenic nerve paralysis [Not Recovered/Not Resolved]
  - Hypoxia [Not Recovered/Not Resolved]

NARRATIVE: CASE EVENT DATE: 20240809
